FAERS Safety Report 24578288 (Version 1)
Quarter: 2024Q4

REPORT INFORMATION
  Report Type: Report from Study
  Country: US (occurrence: US)
  Receive Date: 20241105
  Receipt Date: 20241105
  Transmission Date: 20250115
  Serious: Yes (Other)
  Sender: ABBVIE
  Company Number: US-ABBVIE-5925973

PATIENT
  Age: 41 Year
  Sex: Male
  Weight: 71 kg

DRUGS (9)
  1. SKYRIZI [Suspect]
     Active Substance: RISANKIZUMAB-RZAA
     Indication: Crohn^s disease
     Dosage: STRENGTH : 360MG/2.4ML EVERY 8 WEEKS STARTING AT WEEK 12.
     Route: 058
     Dates: start: 20230729
  2. SKYRIZI [Suspect]
     Active Substance: RISANKIZUMAB-RZAA
     Indication: Crohn^s disease
     Dosage: STRENGTH: 600MG/10ML INTRAVENOUS INFUSION AT WEEK 0
     Route: 042
     Dates: start: 202304, end: 202304
  3. SKYRIZI [Suspect]
     Active Substance: RISANKIZUMAB-RZAA
     Indication: Crohn^s disease
     Dosage: STRENGTH: 600MG/10ML INTRAVENOUS INFUSION AT WEEK 4
     Route: 042
     Dates: start: 202305, end: 202305
  4. SKYRIZI [Suspect]
     Active Substance: RISANKIZUMAB-RZAA
     Indication: Crohn^s disease
     Dosage: STRENGTH: 600MG/10ML INTRAVENOUS INFUSION AT WEEK 8
     Route: 042
     Dates: start: 202306, end: 202306
  5. PAXIL [Concomitant]
     Active Substance: PAROXETINE HYDROCHLORIDE
     Indication: Depression
     Route: 048
     Dates: start: 20010101
  6. PREVACID [Concomitant]
     Active Substance: LANSOPRAZOLE
     Indication: Gastrooesophageal reflux disease
     Route: 048
     Dates: start: 1995
  7. CLARITIN [Concomitant]
     Active Substance: LORATADINE
     Indication: Seasonal allergy
     Route: 048
  8. WELLBUTRIN [Concomitant]
     Active Substance: BUPROPION HYDROCHLORIDE
     Indication: Anxiety
     Route: 048
     Dates: start: 202306
  9. APRAGLUTIDE [Concomitant]
     Active Substance: APRAGLUTIDE
     Indication: Short-bowel syndrome
     Route: 058
     Dates: start: 202111

REACTIONS (3)
  - Small intestinal resection [Unknown]
  - Therapeutic product effect incomplete [Recovering/Resolving]
  - Small intestinal stenosis [Unknown]

NARRATIVE: CASE EVENT DATE: 20230501
